FAERS Safety Report 17962243 (Version 1)
Quarter: 2020Q2

REPORT INFORMATION
  Report Type: Spontaneous
  Country: US (occurrence: US)
  Receive Date: 20200630
  Receipt Date: 20200630
  Transmission Date: 20200714
  Serious: No
  Sender: FDA-Public Use
  Company Number: US-MIKART, LLC-2086857

PATIENT
  Age: 60 Year
  Weight: 81.82 kg

DRUGS (23)
  1. SALSALATE. [Concomitant]
     Active Substance: SALSALATE
  2. VITAMIN D [Concomitant]
     Active Substance: VITAMIN D NOS
  3. MULTIVITAMIN (UNIDENTIFIED) [Concomitant]
  4. AMLODIPINE [Concomitant]
     Active Substance: AMLODIPINE BESYLATE
  5. VITAMIN C (SUPPLEMENT) [Concomitant]
  6. GENTAMICIN SULFATE. [Concomitant]
     Active Substance: GENTAMICIN SULFATE
  7. PROBIOTIC (UNIDENTIFIED) [Concomitant]
  8. CINNAMON. [Concomitant]
     Active Substance: CINNAMON
  9. MUPIROCIN. [Concomitant]
     Active Substance: MUPIROCIN
  10. CORTISONE [Concomitant]
     Active Substance: CORTISONE
  11. HUMIRA [Concomitant]
     Active Substance: ADALIMUMAB
     Route: 058
     Dates: start: 20081020
  12. LEFLUNOMIDE. [Concomitant]
     Active Substance: LEFLUNOMIDE
  13. HYDROCHLOROTHIAZIDE. [Concomitant]
     Active Substance: HYDROCHLOROTHIAZIDE
  14. ASPIRIN. [Concomitant]
     Active Substance: ASPIRIN
  15. EVENING PRIMROSE OIL [Concomitant]
     Active Substance: EVENING PRIMROSE OIL\HERBALS
  16. LOSARTAN. [Concomitant]
     Active Substance: LOSARTAN
  17. METOPROLOL. [Concomitant]
     Active Substance: METOPROLOL
  18. FOLIC ACID. [Concomitant]
     Active Substance: FOLIC ACID
  19. HYDROCODONE BITARTRATE AND ACETAMINOPHEN [Suspect]
     Active Substance: ACETAMINOPHEN\HYDROCODONE BITARTRATE
     Indication: PAIN
     Route: 048
  20. OMEGA 3 [Concomitant]
     Active Substance: OMEGA-3 FATTY ACIDS
  21. TYLENOL [Concomitant]
     Active Substance: ACETAMINOPHEN
  22. CALCIUM (SUPPLEMENT) [Concomitant]
  23. TRIAMCINOLONE [Concomitant]
     Active Substance: TRIAMCINOLONE

REACTIONS (1)
  - Drug ineffective [Unknown]

NARRATIVE: CASE EVENT DATE: 201808
